FAERS Safety Report 11266701 (Version 2)
Quarter: 2016Q1

REPORT INFORMATION
  Report Type: Report from Study
  Country: US (occurrence: US)
  Receive Date: 20150713
  Receipt Date: 20160217
  Transmission Date: 20160525
  Serious: Yes (Death, Hospitalization)
  Sender: FDA-Public Use
  Company Number: US-CELGENEUS-USA-2015070356

PATIENT
  Age: 78 Year
  Sex: Male
  Weight: 86 kg

DRUGS (1)
  1. REVLIMID [Suspect]
     Active Substance: LENALIDOMIDE
     Indication: PLASMA CELL MYELOMA
     Dosage: 15 MILLIGRAM
     Route: 048
     Dates: start: 20131025, end: 20150314

REACTIONS (1)
  - Respiratory failure [Fatal]

NARRATIVE: CASE EVENT DATE: 20150310
